FAERS Safety Report 16141217 (Version 1)
Quarter: 2019Q2

REPORT INFORMATION
  Report Type: Spontaneous
  Country: US (occurrence: US)
  Receive Date: 20190401
  Receipt Date: 20190401
  Transmission Date: 20190711
  Serious: Yes (Other)
  Sender: FDA-Public Use
  Company Number: US-AMREGENT-20190580

PATIENT
  Sex: Female

DRUGS (1)
  1. INJECTAFER [Suspect]
     Active Substance: FERRIC CARBOXYMALTOSE
     Dosage: UNKNOWN
     Route: 041

REACTIONS (8)
  - Pain in extremity [Unknown]
  - Contusion [Unknown]
  - Hot flush [Unknown]
  - Nausea [Unknown]
  - Angina pectoris [Unknown]
  - Feeling abnormal [Unknown]
  - Dizziness [Unknown]
  - Diarrhoea [Unknown]
